FAERS Safety Report 24444043 (Version 2)
Quarter: 2024Q4

REPORT INFORMATION
  Report Type: Report from Study
  Country: US (occurrence: US)
  Receive Date: 20241016
  Receipt Date: 20241017
  Transmission Date: 20250114
  Serious: No
  Sender: ROCHE
  Company Number: US-ROCHE-2307808

PATIENT
  Age: 64 Year
  Sex: Male

DRUGS (8)
  1. RITUXAN [Suspect]
     Active Substance: RITUXIMAB
     Indication: Blepharitis
     Dosage: DATE OF SERVICE : 1/22/2019, 2/5/2019
     Route: 041
  2. RITUXAN [Suspect]
     Active Substance: RITUXIMAB
     Indication: Multisystem inflammatory syndrome
     Dosage: ON 10/JAN/2020, 26/AUG/2020, 09/SEP/2020, 20/JAN/2021, 21/JUN/2021, 09/JUL/2021, 18/APR/2022, 02/MAY
     Route: 042
     Dates: start: 20190122
  3. NASONEX [Concomitant]
     Active Substance: MOMETASONE FUROATE
  4. SYMBICORT [Concomitant]
     Active Substance: BUDESONIDE\FORMOTEROL FUMARATE DIHYDRATE
     Dosage: 80- 4.5 MCG
  5. BENADRYL [Concomitant]
     Active Substance: DIPHENHYDRAMINE HYDROCHLORIDE
     Route: 042
     Dates: start: 20190122
  6. DECADRON [Concomitant]
     Active Substance: DEXAMETHASONE
     Dosage: ONCE
     Route: 042
     Dates: start: 20190122
  7. TYLENOL [Concomitant]
     Active Substance: ACETAMINOPHEN
     Route: 048
     Dates: start: 20190122
  8. SOLU-CORTEF [Concomitant]
     Active Substance: HYDROCORTISONE SODIUM SUCCINATE
     Dates: start: 20190122

REACTIONS (2)
  - Off label use [Unknown]
  - No adverse event [Unknown]
